FAERS Safety Report 5770366-9 (Version None)
Quarter: 2008Q2

REPORT INFORMATION
  Report Type: 
  Country: None (occurrence: None)
  Receive Date: 20080613
  Receipt Date: 20080428
  Transmission Date: 20081010
  Serious: Yes (Other)
  Sender: FDA-Public Use
  Company Number: US-ABBOTT-08P-163-0449308-00

PATIENT
  Sex: Female

DRUGS (4)
  1. HUMIRA [Suspect]
     Indication: RHEUMATOID ARTHRITIS
     Route: 058
     Dates: start: 20071001
  2. HUMIRA [Suspect]
     Route: 058
     Dates: start: 20080301
  3. TRAMADOL HCL [Concomitant]
     Indication: PAIN
     Route: 048
  4. THYROID MEDICINE, NOT NAMED [Concomitant]
     Indication: THYROID DISORDER
     Route: 048

REACTIONS (3)
  - ACCIDENTAL EXPOSURE [None]
  - FALL [None]
  - JOINT INJURY [None]
